FAERS Safety Report 4667670-4 (Version None)
Quarter: 2005Q2

REPORT INFORMATION
  Report Type: 
  Country: None (occurrence: None)
  Receive Date: 20050519
  Receipt Date: 20050519
  Transmission Date: 20051028
  Serious: Yes (Life-Threatening, Hospitalization)
  Sender: FDA-Public Use
  Company Number: None

PATIENT
  Sex: Female
  Weight: 91 kg

DRUGS (1)
  1. AMBIEN [Suspect]
     Indication: SLEEP DISORDER
     Dosage: 5 MG  AT BED TIME ORAL
     Route: 048
     Dates: start: 20050518, end: 20050518

REACTIONS (2)
  - GRAND MAL CONVULSION [None]
  - HYPOXIA [None]
